FAERS Safety Report 7513686-X (Version None)
Quarter: 2011Q2

REPORT INFORMATION
  Report Type: 
  Country: None (occurrence: None)
  Receive Date: 20110531
  Receipt Date: 20110524
  Transmission Date: 20111010
  Serious: Yes (Hospitalization)
  Sender: FDA-Public Use
  Company Number: US-ALLERGAN-1104662US

PATIENT
  Age: 79 Year
  Sex: Female

DRUGS (3)
  1. RESTASIS [Suspect]
     Indication: DRY EYE
     Dosage: 1 DROP EVERY 12 HOURS
     Route: 047
     Dates: end: 20110317
  2. REFRESH PLUS [Suspect]
     Indication: DRY EYE
  3. SYSTANE [Suspect]
     Indication: EYE IRRITATION
     Dosage: 1 DROP INSTILLED IN EACH EYE
     Route: 047

REACTIONS (3)
  - EYE IRRITATION [None]
  - DYSPNOEA [None]
  - CHEST PAIN [None]
